FAERS Safety Report 6148254-8 (Version None)
Quarter: 2009Q2

REPORT INFORMATION
  Report Type: 
  Country: None (occurrence: None)
  Receive Date: 20090408
  Receipt Date: 20090407
  Transmission Date: 20091009
  Serious: Yes (Hospitalization)
  Sender: FDA-Public Use
  Company Number: US-KINGPHARMUSA00001-K200900396

PATIENT
  Age: 62 Year
  Sex: Female

DRUGS (1)
  1. INTAL [Suspect]
     Indication: HYPERSENSITIVITY
     Dosage: UNK
     Dates: start: 20090301, end: 20090331

REACTIONS (3)
  - ASPHYXIA [None]
  - NOCTURNAL DYSPNOEA [None]
  - PRODUCT COUNTERFEIT [None]
